FAERS Safety Report 4758128-2 (Version None)
Quarter: 2005Q3

REPORT INFORMATION
  Report Type: 
  Country: None (occurrence: None)
  Receive Date: 20050829
  Receipt Date: 20050818
  Transmission Date: 20060218
  Serious: Yes (Other)
  Sender: FDA-Public Use
  Company Number: 2005-08-1560

PATIENT

DRUGS (1)
  1. NASONEX [Suspect]
     Indication: ALLERGIC SINUSITIS
     Dosage: 200 MCG QD NASAL SPRAL
     Route: 045

REACTIONS (1)
  - ADRENAL SUPPRESSION [None]
